FAERS Safety Report 7892368-9 (Version None)
Quarter: 2011Q4

REPORT INFORMATION
  Report Type: 
  Country: None (occurrence: None)
  Receive Date: 20111103
  Receipt Date: 20111103
  Transmission Date: 20120403
  Serious: Yes (Hospitalization)
  Sender: FDA-Public Use
  Company Number: None

PATIENT
  Sex: Male
  Weight: 81.6475 kg

DRUGS (1)
  1. SUPREP BOWEL PREP KIT [Suspect]
     Indication: COLONOSCOPY
     Dosage: 6OZ + 10OZ H20 + 32OZ H20 1 PO -047
     Route: 048
     Dates: start: 20111019

REACTIONS (5)
  - DYSARTHRIA [None]
  - TREMOR [None]
  - SYNCOPE [None]
  - FALL [None]
  - CONFUSIONAL STATE [None]
